FAERS Safety Report 6292295-7 (Version None)
Quarter: 2009Q3

REPORT INFORMATION
  Report Type: 
  Country: None (occurrence: None)
  Receive Date: 20090731
  Receipt Date: 20090721
  Transmission Date: 20100115
  Serious: Yes (Life-Threatening, Disabling)
  Sender: FDA-Public Use
  Company Number: GB-ROCHE-645391

PATIENT
  Age: 79 Year
  Sex: Female
  Weight: 62 kg

DRUGS (7)
  1. BONIVA [Suspect]
     Indication: OSTEOPOROSIS
     Route: 048
     Dates: start: 20090529, end: 20090630
  2. BENDROFLUAZIDE [Interacting]
     Route: 048
     Dates: start: 20060101, end: 20090630
  3. BISOPROLOL [Concomitant]
     Route: 048
     Dates: start: 20020101
  4. CALCIUM/VITAMIN D [Concomitant]
     Indication: OSTEOPOROSIS
     Dosage: DRUG NAME REPORTED AS : CALCIUM AND VITAMIN D. DOSE NOT PROVIDED
     Route: 048
     Dates: start: 20030101
  5. CLOPIDOGREL [Concomitant]
     Indication: ANTIPLATELET THERAPY
     Route: 048
     Dates: start: 20000101
  6. DOMPERIDONE [Concomitant]
     Indication: OESOPHAGEAL DISORDER
     Route: 048
     Dates: start: 20000101
  7. RAMIPRIL [Concomitant]
     Route: 048
     Dates: start: 20010101

REACTIONS (5)
  - ASTHENIA [None]
  - DRUG INTERACTION [None]
  - HYPONATRAEMIA [None]
  - MYALGIA [None]
  - NAUSEA [None]
